FAERS Safety Report 5530806-7 (Version None)
Quarter: 2007Q4

REPORT INFORMATION
  Report Type: 
  Country: None (occurrence: None)
  Receive Date: 20071130
  Receipt Date: 20071120
  Transmission Date: 20080405
  Serious: Yes (Other)
  Sender: FDA-Public Use
  Company Number: US-ABBOTT-07P-163-0425529-00

PATIENT
  Age: 30 Year
  Sex: Male

DRUGS (2)
  1. HUMIRA [Suspect]
     Indication: PSORIATIC ARTHROPATHY
     Route: 058
  2. HUMIRA [Suspect]
     Indication: SPONDYLITIS

REACTIONS (4)
  - LYMPH NODE TUBERCULOSIS [None]
  - PSORIATIC ARTHROPATHY [None]
  - PULMONARY EMBOLISM [None]
  - SPONDYLITIS [None]
